FAERS Safety Report 13264539 (Version 1)
Quarter: 2017Q1

REPORT INFORMATION
  Report Type: Spontaneous
  Country: None (occurrence: US)
  Receive Date: 20170223
  Receipt Date: 20170223
  Transmission Date: 20170428
  Serious: Yes (Hospitalization)
  Sender: FDA-Public Use
  Company Number: None

PATIENT
  Age: 15 Year
  Sex: Male
  Weight: 113.4 kg

DRUGS (3)
  1. DAUNORUBICIN [Suspect]
     Active Substance: DAUNORUBICIN
     Dates: end: 20170214
  2. VINCRISTINE SULFATE. [Suspect]
     Active Substance: VINCRISTINE SULFATE
     Dates: end: 20170214
  3. PREDNISONE. [Suspect]
     Active Substance: PREDNISONE
     Dates: end: 20170214

REACTIONS (6)
  - Septic shock [None]
  - Blood fibrinogen decreased [None]
  - Prothrombin time prolonged [None]
  - Bacterial test positive [None]
  - Staphylococcal sepsis [None]
  - Hypotension [None]

NARRATIVE: CASE EVENT DATE: 20170217
